FAERS Safety Report 13155020 (Version 3)
Quarter: 2017Q2

REPORT INFORMATION
  Report Type: Spontaneous
  Country: US (occurrence: US)
  Receive Date: 20170126
  Receipt Date: 20170419
  Transmission Date: 20170830
  Serious: No
  Sender: FDA-Public Use
  Company Number: US-PFIZER INC-2017029822

PATIENT
  Sex: Female

DRUGS (1)
  1. XELJANZ [Suspect]
     Active Substance: TOFACITINIB CITRATE
     Indication: RHEUMATOID ARTHRITIS
     Dosage: 5 MG, 1X/DAY

REACTIONS (11)
  - Migraine [Recovering/Resolving]
  - Wheezing [Recovering/Resolving]
  - Dizziness [Recovering/Resolving]
  - Abdominal distension [Recovering/Resolving]
  - Dyspepsia [Recovering/Resolving]
  - Middle insomnia [Unknown]
  - Increased tendency to bruise [Unknown]
  - Fatigue [Recovering/Resolving]
  - Sleep disorder [Recovering/Resolving]
  - Intentional product use issue [Unknown]
  - Drug ineffective [Recovering/Resolving]
